FAERS Safety Report 9997161 (Version 1)
Quarter: 2014Q1

REPORT INFORMATION
  Report Type: Spontaneous
  Country: US (occurrence: US)
  Receive Date: 20140311
  Receipt Date: 20140311
  Transmission Date: 20141002
  Serious: No
  Sender: FDA-Public Use
  Company Number: US-GLAXOSMITHKLINE-A1020342A

PATIENT
  Age: 76 Year
  Sex: Female

DRUGS (2)
  1. NICORETTE OTC 2MG [Suspect]
     Indication: EX-TOBACCO USER
  2. BUSPAR [Concomitant]

REACTIONS (6)
  - Pruritus [Not Recovered/Not Resolved]
  - Pruritus [Not Recovered/Not Resolved]
  - Dry skin [Not Recovered/Not Resolved]
  - Pruritus [Not Recovered/Not Resolved]
  - Erythema [Not Recovered/Not Resolved]
  - Intentional drug misuse [Not Recovered/Not Resolved]
